FAERS Safety Report 7579426-3 (Version None)
Quarter: 2011Q2

REPORT INFORMATION
  Report Type: 
  Country: None (occurrence: None)
  Receive Date: 20110629
  Receipt Date: 20110620
  Transmission Date: 20111010
  Serious: Yes (Hospitalization)
  Sender: FDA-Public Use
  Company Number: US-BIOGENIDEC-2011BI021455

PATIENT
  Age: 69 Year
  Sex: Female

DRUGS (2)
  1. AVONEX [Suspect]
     Indication: MULTIPLE SCLEROSIS
     Route: 030
     Dates: start: 20100101, end: 20110526
  2. AVONEX [Suspect]
     Route: 030

REACTIONS (8)
  - UPPER LIMB FRACTURE [None]
  - CONVULSION [None]
  - HIP FRACTURE [None]
  - LOSS OF CONTROL OF LEGS [None]
  - REFLEXES ABNORMAL [None]
  - FALL [None]
  - VISUAL IMPAIRMENT [None]
  - MUSCULOSKELETAL PAIN [None]
